FAERS Safety Report 6382355-4 (Version None)
Quarter: 2009Q3

REPORT INFORMATION
  Report Type: 
  Country: None (occurrence: None)
  Receive Date: 20090925
  Receipt Date: 20090918
  Transmission Date: 20100115
  Serious: Yes (Other)
  Sender: FDA-Public Use
  Company Number: 2009SP022740

PATIENT
  Age: 47 Year
  Sex: Male
  Weight: 98.4306 kg

DRUGS (5)
  1. TINACTIN POWDER [Suspect]
     Indication: BURNING SENSATION
     Dosage: BID;TOP
     Route: 061
     Dates: start: 20090804, end: 20090807
  2. TINACTIN POWDER [Suspect]
     Indication: DRUG USE FOR UNKNOWN INDICATION
     Dosage: BID;TOP
     Route: 061
     Dates: start: 20090804, end: 20090807
  3. TINACTIN POWDER [Suspect]
     Indication: PRURITUS
     Dosage: BID;TOP
     Route: 061
     Dates: start: 20090804, end: 20090807
  4. GLYBURIDE (CON.) [Concomitant]
  5. BENAZEPRIL (CON.) [Concomitant]

REACTIONS (11)
  - ABASIA [None]
  - APPLICATION SITE IRRITATION [None]
  - APPLICATION SITE REACTION [None]
  - BURN INFECTION [None]
  - CELLULITIS [None]
  - DIABETES MELLITUS INADEQUATE CONTROL [None]
  - DRUG HYPERSENSITIVITY [None]
  - IMPAIRED WORK ABILITY [None]
  - PURULENCE [None]
  - THERMAL BURN [None]
  - TINEA PEDIS [None]
